FAERS Safety Report 9030857 (Version 1)
Quarter: 2013Q1

REPORT INFORMATION
  Report Type: Report from Study
  Country: CA (occurrence: CA)
  Receive Date: 20130123
  Receipt Date: 20130123
  Transmission Date: 20140127
  Serious: Yes (Hospitalization)
  Sender: FDA-Public Use
  Company Number: CA-JNJFOC-20130107832

PATIENT
  Age: 82 Year
  Sex: Female
  Weight: 57 kg

DRUGS (1)
  1. REMICADE [Suspect]
     Indication: RHEUMATOID ARTHRITIS
     Dosage: FOR 52 WEEKS
     Route: 042
     Dates: start: 20040207

REACTIONS (1)
  - Hip fracture [Unknown]
